FAERS Safety Report 14333498 (Version 3)
Quarter: 2018Q1

REPORT INFORMATION
  Report Type: Report from Study
  Country: TR (occurrence: TR)
  Receive Date: 20171228
  Receipt Date: 20180129
  Transmission Date: 20180509
  Serious: Yes (Life-Threatening, Hospitalization, Other)
  Sender: FDA-Public Use
  Company Number: TR-SUN PHARMACEUTICAL INDUSTRIES LTD-2017RR-158106

PATIENT
  Age: 65 Year
  Sex: Male

DRUGS (2)
  1. PAROXETINE. [Suspect]
     Active Substance: PAROXETINE
     Indication: PARKINSON^S DISEASE
     Dosage: UNK
     Route: 065
  2. LEVODOPA [Suspect]
     Active Substance: LEVODOPA
     Indication: PARKINSON^S DISEASE
     Dosage: UNK
     Route: 065

REACTIONS (2)
  - Withdrawal syndrome [Recovered/Resolved]
  - Neuroleptic malignant syndrome [Recovered/Resolved]
